FAERS Safety Report 15877565 (Version 1)
Quarter: 2019Q1

REPORT INFORMATION
  Report Type: Spontaneous
  Country: GB (occurrence: GB)
  Receive Date: 20190128
  Receipt Date: 20190128
  Transmission Date: 20190417
  Serious: Yes (Other)
  Sender: FDA-Public Use
  Company Number: GB-DEXPHARM-20190040

PATIENT
  Age: 36 Year
  Sex: Female
  Weight: 47 kg

DRUGS (8)
  1. CORSODYL [Suspect]
     Active Substance: CHLORHEXIDINE GLUCONATE
     Indication: TOOTH EXTRACTION
     Route: 048
     Dates: start: 20181218, end: 20181228
  2. VITAMIN D [Concomitant]
     Active Substance: CHOLECALCIFEROL
  3. CLARITHROMYCIN. [Concomitant]
     Active Substance: CLARITHROMYCIN
  4. IBUPROFEN. [Concomitant]
     Active Substance: IBUPROFEN
  5. AMOXICILLIN. [Concomitant]
     Active Substance: AMOXICILLIN
  6. MICONAZOLE. [Suspect]
     Active Substance: MICONAZOLE
     Indication: ORAL CANDIDIASIS
     Route: 061
     Dates: start: 20181222, end: 20181226
  7. OMEPRAZOLE. [Concomitant]
     Active Substance: OMEPRAZOLE
  8. METRONIDAZOLE. [Concomitant]
     Active Substance: METRONIDAZOLE

REACTIONS (3)
  - Dysgeusia [Unknown]
  - Tongue discolouration [Recovering/Resolving]
  - Drug ineffective [Unknown]

NARRATIVE: CASE EVENT DATE: 20181225
